FAERS Safety Report 10264752 (Version 1)
Quarter: 2014Q2

REPORT INFORMATION
  Report Type: Spontaneous
  Country: US (occurrence: None)
  Receive Date: 20140625
  Receipt Date: 20140625
  Transmission Date: 20141212
  Serious: Yes (Other)
  Sender: FDA-Public Use
  Company Number: None

PATIENT
  Age: 59 Year
  Sex: Male
  Weight: 81.65 kg

DRUGS (1)
  1. FLUOXETINE [Suspect]
     Indication: DEPRESSION
     Dosage: 1 PILL QD ORAL
     Route: 048
     Dates: start: 20140602, end: 20140620

REACTIONS (3)
  - Hypersensitivity [None]
  - Rash generalised [None]
  - Product substitution issue [None]
